FAERS Safety Report 24411270 (Version 1)
Quarter: 2024Q4

REPORT INFORMATION
  Report Type: Spontaneous
  Country: CA (occurrence: CA)
  Receive Date: 20241008
  Receipt Date: 20241008
  Transmission Date: 20250115
  Serious: Yes (Life-Threatening, Disabling, Other)
  Sender: BAXTER
  Company Number: CA-BAXTER-2024BAX025392

PATIENT
  Age: 97 Year
  Sex: Female

DRUGS (119)
  1. ACETAMINOPHEN [Suspect]
     Active Substance: ACETAMINOPHEN
     Indication: Product used for unknown indication
     Dosage: (DOSAGE FORM: NOT SPECIFIED) 10.0 MG AT AN UNSPECIFIED FREQUENCY
     Route: 065
  2. ACTEMRA [Suspect]
     Active Substance: TOCILIZUMAB
     Indication: Rheumatoid arthritis
     Dosage: (DOSAGE FORM: NOT SPECIFIED) UNSPECIFIED DOSE AND FREQUENCY
     Route: 058
  3. ACTEMRA [Suspect]
     Active Substance: TOCILIZUMAB
     Dosage: (DOSAGE FORM: NOT SPECIFIED) UNSPECIFIED DOSE AND FREQUENCY
     Route: 061
  4. ADALIMUMAB [Suspect]
     Active Substance: ADALIMUMAB
     Indication: Rheumatoid arthritis
     Dosage: (DOSAGE FORM: SOLUTION SUBCUTANEOUS) UNSPECIFIED DOSE AND FREQUENCY
     Route: 058
  5. ALENDRONATE SODIUM [Suspect]
     Active Substance: ALENDRONATE SODIUM
     Indication: Rheumatoid arthritis
     Dosage: ALENDRONATE SODIUM TRIHYDRATE (DOSAGE FORM: NOT SPECIFIED) UNSPECIFIED DOSE AND FREQUENCY
     Route: 048
  6. PREDNISONE [Suspect]
     Active Substance: PREDNISONE
     Indication: Rheumatoid arthritis
     Dosage: 1.0 MG AT AN UNSPECIFIED FREQUENCY
     Route: 065
  7. PREDNISONE [Suspect]
     Active Substance: PREDNISONE
     Dosage: 40.0 MG AT AN UNSPECIFIED FREQUENCY
     Route: 065
  8. PREDNISONE [Suspect]
     Active Substance: PREDNISONE
     Dosage: UNSPECIFIED DOSE AND FREQUENCY
     Route: 048
  9. ARAVA [Suspect]
     Active Substance: LEFLUNOMIDE
     Indication: Rheumatoid arthritis
     Dosage: UNSPECIFIED DOSE AND FREQUENCY
     Route: 005
  10. ARAVA [Suspect]
     Active Substance: LEFLUNOMIDE
     Dosage: 20.0 MG AT AN UNSPECIFIED FREQUENCY
     Route: 048
  11. CALCIUM [Suspect]
     Active Substance: CALCIUM
     Indication: Product used for unknown indication
     Dosage: (DOSAGE FORM: NOT SPECIFIED) UNSPECIFIED DOSE AND FREQUENCY
     Route: 065
  12. CALCIUM CARBONATE [Suspect]
     Active Substance: CALCIUM CARBONATE
     Indication: Product used for unknown indication
     Dosage: (DOSAGE FORM: NOT SPECIFIED) UNSPECIFIED DOSE AND FREQUENCY
     Route: 065
  13. CALCIUM CHLORIDE [Suspect]
     Active Substance: CALCIUM CHLORIDE
     Indication: Product used for unknown indication
     Dosage: (DOSAGE FORM: NOT SPECIFIED) UNSPECIFIED DOSE AND FREQUENCY
     Route: 065
  14. CELEBREX [Suspect]
     Active Substance: CELECOXIB
     Indication: Rheumatoid arthritis
     Dosage: 200.0 MG AT AN UNSPECIFIED FREQUENCY
     Route: 065
  15. CELEBREX [Suspect]
     Active Substance: CELECOXIB
     Dosage: 2.0 DOSAGE FORMS, 1 EVERY 1 DAYS
     Route: 065
  16. CETIRIZINE [Suspect]
     Active Substance: CETIRIZINE HYDROCHLORIDE
     Indication: Rheumatoid arthritis
     Dosage: (DOSAGE FORM: NOT SPECIFIED) UNSPECIFIED DOSE AND FREQUENCY
     Route: 065
  17. CETIRIZINE HYDROCHLORIDE\PSEUDOEPHEDRINE HYDROCHLORIDE [Suspect]
     Active Substance: CETIRIZINE HYDROCHLORIDE\PSEUDOEPHEDRINE HYDROCHLORIDE
     Indication: Rheumatoid arthritis
     Dosage: (DOSAGE FORM: NOT SPECIFIED) 10.0 MG AT AN UNSPECIFIED FREQUENCY
     Route: 065
  18. CHLORHEXIDINE [Suspect]
     Active Substance: CHLORHEXIDINE
     Indication: Product used for unknown indication
     Dosage: (DOSAGE FORM: NOT SPECIFIED) UNSPECIFIED DOSE AND FREQUENCY
     Route: 048
  19. CHOLECALCIFEROL [Suspect]
     Active Substance: CHOLECALCIFEROL
     Indication: Product used for unknown indication
     Dosage: (DOSAGE FORM: NOT SPECIFIED) UNSPECIFIED DOSE AND FREQUENCY
     Route: 065
  20. CIMZIA [Suspect]
     Active Substance: CERTOLIZUMAB PEGOL
     Indication: Rheumatoid arthritis
     Dosage: UNSPECIFIED DOSE AND FREQUENCY
     Route: 005
  21. CIMZIA [Suspect]
     Active Substance: CERTOLIZUMAB PEGOL
     Indication: Psoriasis
     Dosage: 2.0 DOSAGE FORMS AT AN UNSPECIFIED FREQUENCY
     Route: 058
  22. CIMZIA [Suspect]
     Active Substance: CERTOLIZUMAB PEGOL
     Dosage: 400.0 MG AT AN UNSPECIFIED FREQUENCY
     Route: 058
  23. CORTISONE [Suspect]
     Active Substance: CORTISONE
     Indication: Rheumatoid arthritis
     Dosage: (DOSAGE FORM: NOT SPECIFIED) UNSPECIFIED DOSE AND FREQUENCY
     Route: 058
  24. CORTISONE ACETATE [Suspect]
     Active Substance: CORTISONE ACETATE
     Indication: Rheumatoid arthritis
     Dosage: 25.0 MG AT AN UNSPECIFIED FREQUENCY
     Route: 061
  25. COSENTYX [Suspect]
     Active Substance: SECUKINUMAB
     Indication: Psoriatic arthropathy
     Dosage: (DOSAGE FORM: NOT SPECIFIED) UNSPECIFIED DOSE AND FREQUENCY
     Route: 042
  26. DESOXIMETASONE [Suspect]
     Active Substance: DESOXIMETASONE
     Indication: Rheumatoid arthritis
     Dosage: (DOSAGE FORM: NOT SPECIFIED) 25.0 MG AT AN UNSPECIFIED FREQUENCY
     Route: 065
  27. DESOXIMETASONE [Suspect]
     Active Substance: DESOXIMETASONE
     Dosage: (DOSAGE FORM: NOT SPECIFIED) UNSPECIFIED DOSE AND FREQUENCY
     Route: 048
  28. DICLOFENAC [Suspect]
     Active Substance: DICLOFENAC
     Indication: Product used for unknown indication
     Dosage: (DOSAGE FORM: NOT SPECIFIED) UNSPECIFIED DOSE AND FREQUENCY
     Route: 065
  29. DICLOFENAC POTASSIUM [Suspect]
     Active Substance: DICLOFENAC POTASSIUM
     Indication: Product used for unknown indication
     Dosage: UNSPECIFIED DOSE AND FREQUENCY
     Route: 065
  30. DICLOFENAC SODIUM [Suspect]
     Active Substance: DICLOFENAC SODIUM
     Indication: Product used for unknown indication
     Dosage: (DOSAGE FORM: NOT SPECIFIED) 50.0 MG AT AN UNSPECIFIED FREQUENCY
     Route: 065
  31. ERELZI [Suspect]
     Active Substance: ETANERCEPT-SZZS
     Indication: Product used for unknown indication
     Dosage: (DOSAGE FORM: NOT SPECIFIED) UNSPECIFIED DOSE AND FREQUENCY
     Route: 058
  32. ETANERCEPT [Suspect]
     Active Substance: ETANERCEPT
     Indication: Rheumatoid arthritis
     Dosage: (DOSAGE FORM: NOT SPECIFIED) 20.0 MG AT AN UNSPECIFIED FREQUENCY
     Route: 058
  33. ETANERCEPT [Suspect]
     Active Substance: ETANERCEPT
     Dosage: (DOSAGE FORM: NOT SPECIFIED) 50.0 MG, 1 EVERY 1 WEEKS
     Route: 058
  34. ETANERCEPT [Suspect]
     Active Substance: ETANERCEPT
     Dosage: (DOSAGE FORM: NOT SPECIFIED) UNSPECIFIED DOSE AND FREQUENCY
     Route: 048
  35. FLUMETHASONE [Suspect]
     Active Substance: FLUMETHASONE
     Indication: Rheumatoid arthritis
     Dosage: (DOSAGE FORM: NOT SPECIFIED) UNSPECIFIED DOSE AND FREQUENCY
     Route: 058
  36. FOLIC ACID [Suspect]
     Active Substance: FOLIC ACID
     Indication: Rheumatoid arthritis
     Dosage: (DOSAGE FORM: NOT SPECIFIED) 1.0 G AT AN UNSPECIFIED FREQUENCY
     Route: 058
  37. FOLIC ACID [Suspect]
     Active Substance: FOLIC ACID
     Dosage: (DOSAGE FORM: NOT SPECIFIED) 1.0 MG AT AN UNSPECIFIED FREQUENCY
     Route: 065
  38. FOLIC ACID [Suspect]
     Active Substance: FOLIC ACID
     Dosage: (DOSAGE FORM: NOT SPECIFIED) 500.0 MG AT AN UNSPECIFIED FREQUENCY
     Route: 065
  39. FOLIC ACID [Suspect]
     Active Substance: FOLIC ACID
     Dosage: (DOSAGE FORM: NOT SPECIFIED) 5.0 MG AT AN UNSPECIFIED FREQUENCY
     Route: 048
  40. FOLIC ACID [Suspect]
     Active Substance: FOLIC ACID
     Dosage: (DOSAGE FORM: NOT SPECIFIED) 1.0 MG AT AN UNSPECIFIED FREQUENCY
     Route: 058
  41. FOSAMAX [Suspect]
     Active Substance: ALENDRONATE SODIUM
     Indication: Rheumatoid arthritis
     Dosage: (DOSAGE FORM: NOT SPECIFIED) UNSPECIFIED DOSE AND FREQUENCY
     Route: 048
  42. FOSAMAX [Suspect]
     Active Substance: ALENDRONATE SODIUM
     Dosage: (DOSAGE FORM: NOT SPECIFIED) UNSPECIFIED DOSE AND FREQUENCY
     Route: 016
  43. HUMIRA [Suspect]
     Active Substance: ADALIMUMAB
     Indication: Rheumatoid arthritis
     Dosage: (DOSAGE FORM: NOT SPECIFIED) 40.0 MG AT AN UNSPECIFIED FREQUENCY
     Route: 058
  44. HUMIRA [Suspect]
     Active Substance: ADALIMUMAB
     Dosage: (DOSAGE FORM: NOT SPECIFIED) 4.0 MG AT AN UNSPECIFIED FREQUENCY
     Route: 058
  45. HYDROCORTISONE [Suspect]
     Active Substance: HYDROCORTISONE
     Indication: Rheumatoid arthritis
     Dosage: (DOSAGE FORM: NOT SPECIFIED) UNSPECIFIED DOSE AND FREQUENCY
     Route: 061
  46. HYDROCORTISONE [Suspect]
     Active Substance: HYDROCORTISONE
     Dosage: (DOSAGE FORM: NOT SPECIFIED) UNSPECIFIED DOSE AND FREQUENCY
     Route: 058
  47. HYDROXYCHLOROQUINE [Suspect]
     Active Substance: HYDROXYCHLOROQUINE
     Indication: Rheumatoid arthritis
     Dosage: (DOSAGE FORM: NOT SPECIFIED) 1.0 DOSAGE FORMS AT AN UNSPECIFIED FREQUENCY
     Route: 048
  48. HYDROXYCHLOROQUINE [Suspect]
     Active Substance: HYDROXYCHLOROQUINE
     Dosage: (DOSAGE FORM: NOT SPECIFIED) 400.0 MG AT AN UNSPECIFIED FREQUENCY
     Route: 048
  49. HYDROXYCHLOROQUINE SULFATE [Suspect]
     Active Substance: HYDROXYCHLOROQUINE SULFATE
     Indication: Rheumatoid arthritis
     Dosage: (HYDROXYCHLOROQUINE SULFATE TABLETS, USP) UNSPECIFIED DOSE, 1 EVERY 1 DAYS
     Route: 048
  50. HYDROXYCHLOROQUINE SULFATE [Suspect]
     Active Substance: HYDROXYCHLOROQUINE SULFATE
     Dosage: (HYDROXYCHLOROQUINE SULFATE TABLETS, USP) UNSPECIFIED DOSE AND FREQUENCY
     Route: 005
  51. ISOPROPYL ALCOHOL [Suspect]
     Active Substance: ISOPROPYL ALCOHOL
     Indication: Rheumatoid arthritis
     Dosage: UNSPECIFIED DOSE AND FREQUENCY
     Route: 061
  52. LEFLUNOMIDE [Suspect]
     Active Substance: LEFLUNOMIDE
     Indication: Rheumatoid arthritis
     Dosage: (DOSAGE FORM: NOT SPECIFIED) UNSPECIFIED DOSE AND FREQUENCY
     Route: 065
  53. METHOTREXATE [Suspect]
     Active Substance: METHOTREXATE
     Indication: Rheumatoid arthritis
     Dosage: (DOSAGE FORM: NOT SPECIFIED) 2.0 G AT AN UNSPECIFIED FREQUENCY
     Route: 048
  54. METHOTREXATE [Suspect]
     Active Substance: METHOTREXATE
     Dosage: (DOSAGE FORM: NOT SPECIFIED) 20.0 MG AT AN UNSPECIFIED FREQUENCY
     Route: 048
  55. METHOTREXATE [Suspect]
     Active Substance: METHOTREXATE
     Dosage: (DOSAGE FORM: NOT SPECIFIED) 25.0 MG AT AN UNSPECIFIED FREQUENCY
     Route: 013
  56. METHOTREXATE [Suspect]
     Active Substance: METHOTREXATE
     Dosage: (DOSAGE FORM: NOT SPECIFIED) 25.0 MG, 1 EVERY 1 WEEKS
     Route: 013
  57. METHOTREXATE [Suspect]
     Active Substance: METHOTREXATE
     Dosage: (DOSAGE FORM: NOT SPECIFIED) 20.0 MG, 1 EVERY 1 WEEKS
     Route: 065
  58. METHOTREXATE [Suspect]
     Active Substance: METHOTREXATE
     Dosage: (DOSAGE FORM: NOT SPECIFIED) 1.0 G, 2 EVERY 1 DAYS
     Route: 058
  59. METHOTREXATE [Suspect]
     Active Substance: METHOTREXATE
     Dosage: (DOSAGE FORM: NOT SPECIFIED) 20.0 MG, 1 EVERY 1 WEEKS
     Route: 058
  60. METHOTREXATE [Suspect]
     Active Substance: METHOTREXATE
     Dosage: (DOSAGE FORM: NOT SPECIFIED) 25.0 MG AT AN UNSPECIFIED FREQUENCY
     Route: 048
  61. METHOTREXATE [Suspect]
     Active Substance: METHOTREXATE
     Dosage: (DOSAGE FORM: NOT SPECIFIED) 1.0 DOSAGE FORMS, 1 EVERY 1 WEEKS
     Route: 058
  62. METHOTREXATE [Suspect]
     Active Substance: METHOTREXATE
     Dosage: (DOSAGE FORM: NOT SPECIFIED) UNSPECIFIED DOSE AND FREQUENCY
     Route: 065
  63. METHOTREXATE [Suspect]
     Active Substance: METHOTREXATE
     Dosage: (DOSAGE FORM: NOT SPECIFIED) UNSPECIFIED DOSE AND FREQUENCY
     Route: 016
  64. METHOTREXATE [Suspect]
     Active Substance: METHOTREXATE
     Dosage: (DOSAGE FORM: NOT SPECIFIED) 25.0 MG AT AN UNSPECIFIED FREQUENCY
     Route: 013
  65. METHOTREXATE [Suspect]
     Active Substance: METHOTREXATE
     Dosage: (DOSAGE FORM: NOT SPECIFIED) 1.0 DOSAGE FORMS, 1 EVERY 1 WEEKS
     Route: 058
  66. NAPROSYN [Suspect]
     Active Substance: NAPROXEN
     Indication: Rheumatoid arthritis
     Dosage: (DOSAGE FORM: NOT SPECIFIED) 500.0 MG, 1 EVERY 1 DAYS
     Route: 065
  67. NAPROSYN [Suspect]
     Active Substance: NAPROXEN
     Dosage: (DOSAGE FORM: NOT SPECIFIED) 500.0 MG, 2 EVERY 1 DAYS
     Route: 065
  68. NAPROXEN SODIUM [Suspect]
     Active Substance: NAPROXEN SODIUM
     Indication: Rheumatoid arthritis
     Dosage: (DOSAGE FORM: NOT SPECIFIED) UNSPECIFIED DOSE AND FREQUENCY
     Route: 065
  69. ORENCIA [Suspect]
     Active Substance: ABATACEPT
     Indication: Rheumatoid arthritis
     Dosage: (DOSAGE FORM: NOT SPECIFIED) UNSPECIFIED DOSE AND FREQUENCY
     Route: 042
  70. ORENCIA [Suspect]
     Active Substance: ABATACEPT
     Dosage: (DOSAGE FORM: NOT SPECIFIED) 150.0 MG, 1 EVERY 1 MINUTES
     Route: 058
  71. ORENCIA [Suspect]
     Active Substance: ABATACEPT
     Dosage: (DOSAGE FORM: NOT SPECIFIED) 150.0 MG, 1 EVERY 1 WEEKS
     Route: 058
  72. OXYCODONE HYDROCHLORIDE [Suspect]
     Active Substance: OXYCODONE HYDROCHLORIDE
     Indication: Product used for unknown indication
     Dosage: (DOSAGE FORM: NOT SPECIFIED) UNSPECIFIED DOSE AND FREQUENCY
     Route: 065
  73. OXYCODONE TEREPHTHALATE [Suspect]
     Active Substance: OXYCODONE TEREPHTHALATE
     Indication: Product used for unknown indication
     Dosage: (DOSAGE FORM: NOT SPECIFIED) UNSPECIFIED DOSE AND FREQUENCY
     Route: 065
  74. PANTOPRAZOLE [Suspect]
     Active Substance: PANTOPRAZOLE
     Indication: Product used for unknown indication
     Dosage: (DOSAGE FORM: NOT SPECIFIED) UNSPECIFIED DOSE AND FREQUENCY
     Route: 065
  75. PHENYLEPHRINE HYDROCHLORIDE [Suspect]
     Active Substance: PHENYLEPHRINE HYDROCHLORIDE
     Indication: Rheumatoid arthritis
     Dosage: (PHENYLEPHRINE HYDROCHLORIDE INJECTION USP) UNSPECIFIED DOSE AND FREQUENCY
     Route: 030
  76. PHTHALYLSULFATHIAZOLE [Suspect]
     Active Substance: PHTHALYLSULFATHIAZOLE
     Indication: Rheumatoid arthritis
     Dosage: (DOSAGE FORM: NOT SPECIFIED) UNSPECIFIED DOSE AND FREQUENCY
     Route: 042
  77. PHTHALYLSULFATHIAZOLE [Suspect]
     Active Substance: PHTHALYLSULFATHIAZOLE
     Dosage: (DOSAGE FORM: NOT SPECIFIED) UNSPECIFIED DOSE AND FREQUENCY
     Route: 016
  78. PHTHALYLSULFATHIAZOLE [Suspect]
     Active Substance: PHTHALYLSULFATHIAZOLE
     Dosage: (DOSAGE FORM: NOT SPECIFIED) UNSPECIFIED DOSE AND FREQUENCY
     Route: 067
  79. PHTHALYLSULFATHIAZOLE [Suspect]
     Active Substance: PHTHALYLSULFATHIAZOLE
     Dosage: (DOSAGE FORM: NOT SPECIFIED) 500.0 MG AT AN UNSPECIFIED FREQUENCY
     Route: 048
  80. PHTHALYLSULFATHIAZOLE [Suspect]
     Active Substance: PHTHALYLSULFATHIAZOLE
     Dosage: (DOSAGE FORM: NOT SPECIFIED) UNSPECIFIED DOSE AND FREQUENCY
     Route: 058
  81. PREDNISONE [Suspect]
     Active Substance: PREDNISONE
     Indication: Rheumatoid arthritis
     Dosage: (DOSAGE FORM: NOT SPECIFIED) UNSPECIFIED DOSE AND FREQUENCY
     Route: 042
  82. PSEUDOEPHEDRINE HYDROCHLORIDE [Suspect]
     Active Substance: PSEUDOEPHEDRINE HYDROCHLORIDE
     Indication: Rheumatoid arthritis
     Dosage: (DOSAGE FORM: NOT SPECIFIED) 25.0 MG AT AN UNSPECIFIED FREQUENCY
     Route: 065
  83. PSEUDOEPHEDRINE HYDROCHLORIDE [Suspect]
     Active Substance: PSEUDOEPHEDRINE HYDROCHLORIDE
     Dosage: (DOSAGE FORM: NOT SPECIFIED) 10.0 MG AT AN UNSPECIFIED FREQUENCY
     Route: 065
  84. CETIRIZINE HYDROCHLORIDE\PSEUDOEPHEDRINE HYDROCHLORIDE [Suspect]
     Active Substance: CETIRIZINE HYDROCHLORIDE\PSEUDOEPHEDRINE HYDROCHLORIDE
     Indication: Rheumatoid arthritis
     Dosage: (DOSAGE FORM: TABLET (EXTENDED RELEASE)) 25.0 MG AT AN UNSPECIFIED FREQUENCY
     Route: 065
  85. CETIRIZINE HYDROCHLORIDE\PSEUDOEPHEDRINE HYDROCHLORIDE [Suspect]
     Active Substance: CETIRIZINE HYDROCHLORIDE\PSEUDOEPHEDRINE HYDROCHLORIDE
     Dosage: (DOSAGE FORM: TABLET (EXTENDED RELEASE)) 10.0 MG AT AN UNSPECIFIED FREQUENCY
     Route: 065
  86. REMICADE [Suspect]
     Active Substance: INFLIXIMAB
     Indication: Rheumatoid arthritis
     Dosage: (DOSAGE FORM: POWDER FOR SOLUTION INTRAVENOUS) 300.0 MG AT AN UNSPECIFIED FREQUENCY
     Route: 048
  87. RITUXIMAB [Suspect]
     Active Substance: RITUXIMAB
     Indication: Rheumatoid arthritis
     Dosage: (DOSAGE FORM: NOT SPECIFIED) 1.0 G AT AN UNSPECIFIED FREQUENCY
     Route: 042
  88. SARILUMAB [Suspect]
     Active Substance: SARILUMAB
     Indication: Rheumatoid arthritis
     Dosage: (DOSAGE FORM: NOT SPECIFIED) UNSPECIFIED DOSE AND FREQUENCY
     Route: 065
  89. SIMPONI [Suspect]
     Active Substance: GOLIMUMAB
     Indication: Rheumatoid arthritis
     Dosage: (DOSAGE FORM: SOLUTION SUBCUTANEOUS) 50.0 MG, 1 EVERY 1 MONTHS
     Route: 058
  90. SIMPONI [Suspect]
     Active Substance: GOLIMUMAB
     Dosage: (DOSAGE FORM: SOLUTION SUBCUTANEOUS) UNSPECIFIED DOSE AND FREQUENCY
     Route: 042
  91. SIMPONI [Suspect]
     Active Substance: GOLIMUMAB
     Dosage: (DOSAGE FORM: SOLUTION SUBCUTANEOUS) UNSPECIFIED DOSE AND FREQUENCY
     Route: 065
  92. STELARA [Suspect]
     Active Substance: USTEKINUMAB
     Indication: Product used for unknown indication
     Dosage: (DOSAGE FORM: SOLUTION SUBCUTANEOUS) UNSPECIFIED DOSE AND FREQUENCY
     Route: 058
  93. SULFASALAZINE [Suspect]
     Active Substance: SULFASALAZINE
     Indication: Rheumatoid arthritis
     Dosage: (DOSAGE FORM: NOT SPECIFIED) 10.0 MG AT AN UNSPECIFIED FREQUENCY
     Route: 048
  94. SULFASALAZINE [Suspect]
     Active Substance: SULFASALAZINE
     Dosage: (DOSAGE FORM: NOT SPECIFIED) UNSPECIFIED DOSE, 1 EVERY 1 DAYS
     Route: 058
  95. SULFASALAZINE [Suspect]
     Active Substance: SULFASALAZINE
     Dosage: (DOSAGE FORM: NOT SPECIFIED) 1.0 G, 1 EVERY 1 DAYS
     Route: 048
  96. TRIPROLIDINE HYDROCHLORIDE [Suspect]
     Active Substance: TRIPROLIDINE HYDROCHLORIDE
     Indication: Product used for unknown indication
     Dosage: (DOSAGE FORM: NOT SPECIFIED) UNSPECIFIED DOSE AND FREQUENCY
     Route: 065
  97. VITAMIN C [Suspect]
     Active Substance: ASCORBIC ACID
     Indication: Product used for unknown indication
     Dosage: (DOSAGE FORM: NOT SPECIFIED) UNSPECIFIED DOSE AND FREQUENCY
     Route: 065
  98. DICLOFENAC DIETHYLAMINE [Suspect]
     Active Substance: DICLOFENAC DIETHYLAMINE
     Indication: Product used for unknown indication
     Dosage: (VOLTAREN EMULGEL UNKNOWN) (DOSAGE FORM: NOT SPECIFIED) UNSPECIFIED DOSE AND FREQUENCY
     Route: 065
  99. XELJANZ [Suspect]
     Active Substance: TOFACITINIB CITRATE
     Indication: Rheumatoid arthritis
     Dosage: (DOSAGE FORM: NOT SPECIFIED) 5.0 MG, 1 EVERY 1 DAYS
     Route: 048
  100. XELJANZ [Suspect]
     Active Substance: TOFACITINIB CITRATE
     Dosage: (DOSAGE FORM: NOT SPECIFIED) 5.0 MG, 2 EVERY 1 DAYS
     Route: 065
  101. XELJANZ [Suspect]
     Active Substance: TOFACITINIB CITRATE
     Dosage: (DOSAGE FORM: NOT SPECIFIED) 10.0 MG AT AN UNSPECIFIED FREQUENCY
     Route: 065
  102. ALENDRONIC ACID [Concomitant]
     Active Substance: ALENDRONIC ACID
     Indication: Rheumatoid arthritis
     Dosage: (DOSAGE FORM: NOT SPECIFIED) UNSPECIFIED DOSE AND FREQUENCY
     Route: 048
  103. ATIVAN [Concomitant]
     Active Substance: LORAZEPAM
     Dosage: UNK
     Route: 065
  104. CAFFEINE [Concomitant]
     Active Substance: CAFFEINE
     Route: 065
  105. CAFFEINE CITRATE [Concomitant]
     Active Substance: CAFFEINE CITRATE
     Dosage: (DOSAGE FORM: NOT SPECIFIED)
     Route: 065
  106. CALCIUM GLUBIONATE [Concomitant]
     Active Substance: CALCIUM GLUBIONATE
     Dosage: (DOSAGE FORM: NOT SPECIFIED)
     Route: 065
  107. DOCONEXENT\ICOSAPENT [Concomitant]
     Active Substance: DOCONEXENT\ICOSAPENT
     Dosage: (DOSAGE FORM: NOT SPECIFIED)
     Route: 065
  108. ERGOCALCIFEROL [Concomitant]
     Active Substance: ERGOCALCIFEROL
     Dosage: (DOSAGE FORM: NOT SPECIFIED)
     Route: 065
  109. GLUCOSAMINE [Concomitant]
     Active Substance: GLUCOSAMINE
     Dosage: (DOSAGE FORM: NOT SPECIFIED)
     Route: 065
  110. IBUPROFEN [Concomitant]
     Active Substance: IBUPROFEN
     Dosage: (DOSAGE FORM: NOT SPECIFIED)
     Route: 065
  111. MAGNESIUM [Concomitant]
     Active Substance: MAGNESIUM
     Dosage: (DOSAGE FORM: NOT SPECIFIED)
     Route: 065
  112. PANTOPRAZOLE SODIUM ANHYDROUS [Concomitant]
     Active Substance: PANTOPRAZOLE SODIUM ANHYDROUS
     Dosage: (DOSAGE FORM: NOT SPECIFIED)
     Route: 065
  113. QUETIAPINE [Concomitant]
     Active Substance: QUETIAPINE
     Route: 065
  114. RAMIPRIL [Concomitant]
     Active Substance: RAMIPRIL
     Dosage: (DOSAGE FORM: NOT SPECIFIED)
     Route: 065
  115. RISEDRONATE SODIUM [Concomitant]
     Active Substance: RISEDRONATE SODIUM
     Dosage: (DOSAGE FORM: NOT SPECIFIED)
     Route: 065
  116. SULFASALAZINE [Concomitant]
     Active Substance: SULFASALAZINE
     Dosage: (DOSAGE FORM: NOT SPECIFIED)
     Route: 065
  117. FISH OIL [Concomitant]
     Active Substance: FISH OIL
     Dosage: (DOSAGE FORM: NOT SPECIFIED)
     Route: 065
  118. VITAMIN B12 [Concomitant]
     Active Substance: CYANOCOBALAMIN
     Dosage: (DOSAGE FORM: NOT SPECIFIED)
     Route: 065
  119. ZEPATIER [Concomitant]
     Active Substance: ELBASVIR\GRAZOPREVIR
     Route: 065

REACTIONS (24)
  - Dyspepsia [Not Recovered/Not Resolved]
  - Gait disturbance [Not Recovered/Not Resolved]
  - Injury [Not Recovered/Not Resolved]
  - Joint swelling [Not Recovered/Not Resolved]
  - Migraine [Not Recovered/Not Resolved]
  - Mobility decreased [Not Recovered/Not Resolved]
  - Oedema [Not Recovered/Not Resolved]
  - Pain in extremity [Not Recovered/Not Resolved]
  - Pemphigus [Not Recovered/Not Resolved]
  - Pericarditis [Not Recovered/Not Resolved]
  - Pneumonia [Not Recovered/Not Resolved]
  - Psoriatic arthropathy [Not Recovered/Not Resolved]
  - Pulmonary fibrosis [Not Recovered/Not Resolved]
  - Sinusitis [Not Recovered/Not Resolved]
  - Sleep disorder [Not Recovered/Not Resolved]
  - Stomatitis [Not Recovered/Not Resolved]
  - Type 2 diabetes mellitus [Not Recovered/Not Resolved]
  - Ulcer haemorrhage [Not Recovered/Not Resolved]
  - Weight increased [Not Recovered/Not Resolved]
  - Insomnia [Not Recovered/Not Resolved]
  - Pyrexia [Not Recovered/Not Resolved]
  - Liver injury [Not Recovered/Not Resolved]
  - Nausea [Not Recovered/Not Resolved]
  - Urticaria [Not Recovered/Not Resolved]
